FAERS Safety Report 6213500-9 (Version None)
Quarter: 2009Q2

REPORT INFORMATION
  Report Type: 
  Country: None (occurrence: None)
  Receive Date: 20090603
  Receipt Date: 20090527
  Transmission Date: 20091009
  Serious: Yes (Hospitalization)
  Sender: FDA-Public Use
  Company Number: AR-TEVA-196455ISR

PATIENT
  Age: 21 Year
  Sex: Female

DRUGS (3)
  1. TRAZODONE HCL [Suspect]
     Indication: ABNORMAL BEHAVIOUR
     Route: 048
     Dates: start: 20090401, end: 20090525
  2. AMOXICILLIN [Suspect]
     Indication: PHARYNGITIS
     Route: 048
     Dates: start: 20090512, end: 20090522
  3. AMOXICILLIN [Suspect]
     Indication: COUGH

REACTIONS (2)
  - LARYNGEAL OEDEMA [None]
  - RASH [None]
